FAERS Safety Report 22864972 (Version 4)
Quarter: 2023Q4

REPORT INFORMATION
  Report Type: Spontaneous
  Country: US (occurrence: US)
  Receive Date: 20230825
  Receipt Date: 20231208
  Transmission Date: 20240110
  Serious: Yes (Life-Threatening, Hospitalization, Other)
  Sender: FDA-Public Use
  Company Number: US-BRISTOL-MYERS SQUIBB COMPANY-2023-119758

PATIENT
  Age: 76 Year
  Sex: Male

DRUGS (1)
  1. IDHIFA [Suspect]
     Active Substance: ENASIDENIB MESYLATE
     Indication: Product used for unknown indication
     Dosage: FREQUENCY: TAKE 1 TABLET BY MOUTH ALTERNATING WITH 2 TABLETS EVERY OTHER DAY.
     Route: 048

REACTIONS (3)
  - Off label use [Unknown]
  - Intestinal haemorrhage [Unknown]
  - Pulmonary oedema [Unknown]

NARRATIVE: CASE EVENT DATE: 20230927
